FAERS Safety Report 8499171-X (Version None)
Quarter: 2012Q2

REPORT INFORMATION
  Report Type: 
  Country: None (occurrence: None)
  Receive Date: 20120627
  Receipt Date: 20120614
  Transmission Date: 20120825
  Serious: Yes (Hospitalization)
  Sender: FDA-Public Use
  Company Number: 2012AP001029

PATIENT
  Age: 73 Year
  Sex: Female

DRUGS (2)
  1. ALTEPLASE (ALTEPLASE) [Suspect]
     Indication: ISCHAEMIC STROKE
     Dosage: 59.4 MG; 1X, 52.7 MG; UNKNOWN; IV; QH 59.4 MG; UNKONW IV; 1X
     Route: 042
  2. PERINDOPRIL ERBUMINE [Suspect]
     Indication: HYPERTENSION

REACTIONS (10)
  - ISCHAEMIC STROKE [None]
  - HEMIPARESIS [None]
  - SENSORY LOSS [None]
  - DRUG INTERACTION [None]
  - ANAPHYLACTIC REACTION [None]
  - ANGIOEDEMA [None]
  - TACHYPNOEA [None]
  - RESPIRATORY DISTRESS [None]
  - CEREBRAL HAEMORRHAGE [None]
  - CEREBRAL ARTERY OCCLUSION [None]
